FAERS Safety Report 14033089 (Version 1)
Quarter: 2017Q4

REPORT INFORMATION
  Report Type: Spontaneous
  Country: SE (occurrence: SE)
  Receive Date: 20171002
  Receipt Date: 20171002
  Transmission Date: 20180321
  Serious: Yes (Death)
  Sender: FDA-Public Use
  Company Number: SE-PFIZER INC-2017420107

PATIENT
  Age: 53 Year
  Sex: Female

DRUGS (8)
  1. IMOVANE [Concomitant]
     Active Substance: ZOPICLONE
     Dosage: UNK, AS NEEDED
  2. ALVEDON [Concomitant]
     Active Substance: ACETAMINOPHEN
     Dosage: UNK
  3. SIMVASTATIN SANDOZ [Concomitant]
     Active Substance: SIMVASTATIN
     Dosage: UNK
  4. XERODENT /06365801/ [Concomitant]
     Dosage: UNK, AS NEEDED
  5. ZELDOX [Suspect]
     Active Substance: ZIPRASIDONE
     Indication: PSYCHOTIC DISORDER
     Dosage: 20 MG, 2X/DAY (1 IN THE MORNING, 1 IN THE EVENING)
     Dates: start: 2006
  6. LEVAXIN [Concomitant]
     Active Substance: LEVOTHYROXINE SODIUM
     Dosage: UNK
  7. ATARAX [Concomitant]
     Active Substance: HYDROXYZINE HYDROCHLORIDE
     Dosage: UNK
  8. CITALOPRAM BMM PHARMA [Concomitant]
     Dosage: UNK

REACTIONS (2)
  - Pulmonary embolism [Fatal]
  - Disease recurrence [Fatal]

NARRATIVE: CASE EVENT DATE: 201707
